FAERS Safety Report 10016621 (Version 1)
Quarter: 2014Q1

REPORT INFORMATION
  Report Type: Spontaneous
  Country: US (occurrence: US)
  Receive Date: 20140317
  Receipt Date: 20140317
  Transmission Date: 20141002
  Serious: No
  Sender: FDA-Public Use
  Company Number: US-ALLERGAN-1311164US

PATIENT
  Age: 58 Year
  Sex: Female

DRUGS (1)
  1. FLUOROMETHOLONE, 0.1% [Suspect]
     Indication: DRY EYE
     Dosage: 2 GTT, UNK

REACTIONS (5)
  - Eye pain [Unknown]
  - Eye irritation [Unknown]
  - Eye pain [Unknown]
  - Lacrimation increased [Unknown]
  - Ocular hyperaemia [Unknown]
